FAERS Safety Report 9018062 (Version 1)
Quarter: 2013Q1

REPORT INFORMATION
  Report Type: Spontaneous
  Country: US (occurrence: None)
  Receive Date: 20130110
  Receipt Date: 20130110
  Transmission Date: 20140127
  Serious: Yes (Hospitalization)
  Sender: FDA-Public Use
  Company Number: None

PATIENT
  Age: 61 Year
  Sex: Female
  Weight: 97.07 kg

DRUGS (1)
  1. DECITABINE [Suspect]
     Dosage: 0.2 MG/KG SUB-Q 2X/WK
     Route: 058

REACTIONS (5)
  - Pyrexia [None]
  - Diarrhoea [None]
  - Hepatic lesion [None]
  - Pulmonary mass [None]
  - Pneumonia fungal [None]
